FAERS Safety Report 21341386 (Version 2)
Quarter: 2022Q4

REPORT INFORMATION
  Report Type: Spontaneous
  Country: US (occurrence: US)
  Receive Date: 20220916
  Receipt Date: 20221012
  Transmission Date: 20230113
  Serious: No
  Sender: FDA-Public Use
  Company Number: US-TAKEDA-2022TUS063914

PATIENT
  Sex: Female
  Weight: 150 kg

DRUGS (2)
  1. LIVTENCITY [Suspect]
     Active Substance: MARIBAVIR
     Indication: Renal transplant
     Dosage: 200 MILLIGRAM
     Route: 065
     Dates: start: 202202
  2. LIVTENCITY [Suspect]
     Active Substance: MARIBAVIR
     Dosage: 400 MILLIGRAM, BID
     Route: 065
     Dates: start: 202202

REACTIONS (3)
  - Taste disorder [Unknown]
  - Gastric disorder [Not Recovered/Not Resolved]
  - Product use in unapproved indication [Unknown]
